FAERS Safety Report 18226631 (Version 3)
Quarter: 2022Q1

REPORT INFORMATION
  Report Type: Spontaneous
  Country: US (occurrence: US)
  Receive Date: 20200903
  Receipt Date: 20220304
  Transmission Date: 20220423
  Serious: Yes (Hospitalization, Other)
  Sender: FDA-Public Use
  Company Number: US-MLMSERVICE-20200825-2453808-1

PATIENT
  Age: 56 Year
  Sex: Male

DRUGS (14)
  1. LINEZOLID [Suspect]
     Active Substance: LINEZOLID
     Indication: Antiphospholipid syndrome
     Dosage: UNK
  2. ARGATROBAN [Suspect]
     Active Substance: ARGATROBAN
     Indication: Thrombocytopenia
     Dosage: 0.25 UG/KG (FREQ:1 MIN)
  3. ARGATROBAN [Suspect]
     Active Substance: ARGATROBAN
     Indication: Anticoagulant therapy
     Dosage: 0.5 UG/KG (FREQ:1 MIN;DAY 1 AND 2)
  4. ARGATROBAN [Suspect]
     Active Substance: ARGATROBAN
     Dosage: UNK (DECREASED OR INCREASED BY 25% FROM THE INITIAL RATE)
  5. FLUCONAZOLE [Concomitant]
     Active Substance: FLUCONAZOLE
     Dosage: UNK
  6. PIPERACILLIN SODIUM\TAZOBACTAM SODIUM [Concomitant]
     Active Substance: PIPERACILLIN SODIUM\TAZOBACTAM SODIUM
     Dosage: UNK
  7. DOCUSATE SODIUM [Concomitant]
     Active Substance: DOCUSATE SODIUM
     Dosage: UNK
  8. INSULIN ASPART [Concomitant]
     Active Substance: INSULIN ASPART
     Dosage: UNK
  9. FENTANYL [Concomitant]
     Active Substance: FENTANYL
     Dosage: UNK
  10. PANTOPRAZOLE [Concomitant]
     Active Substance: PANTOPRAZOLE
     Dosage: UNK
  11. METHYLPREDNISOLONE [Concomitant]
     Active Substance: METHYLPREDNISOLONE
     Dosage: UNK
  12. FERROUS SULFATE [Concomitant]
     Active Substance: FERROUS SULFATE
     Dosage: UNK
  13. INSULIN DETEMIR [Concomitant]
     Active Substance: INSULIN DETEMIR
     Dosage: UNK
  14. NOREPINEPHRINE [Concomitant]
     Active Substance: NOREPINEPHRINE
     Dosage: UNK

REACTIONS (1)
  - Thrombocytopenia [Recovering/Resolving]
